FAERS Safety Report 7781281-3 (Version None)
Quarter: 2011Q3

REPORT INFORMATION
  Report Type: 
  Country: None (occurrence: None)
  Receive Date: 20110923
  Receipt Date: 20110908
  Transmission Date: 20111222
  Serious: Yes (Death)
  Sender: FDA-Public Use
  Company Number: 1000023909

PATIENT
  Age: 81 Year
  Sex: Female
  Weight: 45 kg

DRUGS (4)
  1. CO-AMOXI (AMOXICILLIN, CLAVULANIC ACID) (TABLETS) (AMOXICILLIN, CLAVUL [Concomitant]
  2. LASIX (FUROSEMIDE SODIUM) (TABLETS) (FUROSEMIDE SODIUM) [Concomitant]
  3. VENTOLIN (SALBUTAMOL SULFATE) (SALBUTAMOL SULFATE) [Concomitant]
  4. MEMANTINE [Suspect]
     Indication: DEMENTIA ALZHEIMER'S TYPE
     Dates: start: 20110506

REACTIONS (3)
  - PNEUMONIA [None]
  - CARDIAC FAILURE [None]
  - ACUTE PULMONARY OEDEMA [None]
